FAERS Safety Report 4750662-4 (Version None)
Quarter: 2005Q3

REPORT INFORMATION
  Report Type: 
  Country: None (occurrence: None)
  Receive Date: 20050823
  Receipt Date: 20050811
  Transmission Date: 20060218
  Serious: Yes (Death, Hospitalization)
  Sender: FDA-Public Use
  Company Number: CH-BRISTOL-MYERS SQUIBB COMPANY-13075080

PATIENT
  Age: 85 Year
  Sex: Male

DRUGS (3)
  1. MAXIPIME [Suspect]
     Route: 042
     Dates: start: 20050201, end: 20050301
  2. RIFATER [Suspect]
     Route: 048
     Dates: start: 20050201, end: 20050301
  3. FLAGYL [Suspect]
     Dates: start: 20050201, end: 20050301

REACTIONS (5)
  - COMA HEPATIC [None]
  - HEPATIC FAILURE [None]
  - HEPATITIS FULMINANT [None]
  - INFLAMMATION [None]
  - RENAL FAILURE ACUTE [None]
